FAERS Safety Report 5214028-5 (Version None)
Quarter: 2007Q1

REPORT INFORMATION
  Report Type: 
  Country: None (occurrence: None)
  Receive Date: 20070122
  Receipt Date: 20070111
  Transmission Date: 20070707
  Serious: Yes (Other)
  Sender: FDA-Public Use
  Company Number: CA-ELI_LILLY_AND_COMPANY-CA200611002674

PATIENT
  Age: 18 Year
  Sex: Male
  Weight: 80.725 kg

DRUGS (5)
  1. ZYPREXA [Suspect]
     Indication: PSYCHOTIC DISORDER
     Dosage: 15 MG, EACH EVENING
     Route: 048
     Dates: start: 20060501, end: 20060101
  2. ZYPREXA [Suspect]
     Dosage: 12.5 MG, EACH EVENING
     Dates: start: 20060101
  3. CLONAZEPAM [Concomitant]
     Dosage: 1 MG, 2/D
     Route: 048
  4. SALBUTAMOL [Concomitant]
     Dosage: UNK, AS NEEDED
  5. MINOCYCLINE HCL [Concomitant]
     Indication: ACNE
     Dosage: UNK, 2/D
     Dates: start: 20060801

REACTIONS (3)
  - CHORIORETINOPATHY [None]
  - EXTRAPYRAMIDAL DISORDER [None]
  - STRESS [None]
